FAERS Safety Report 12876837 (Version 1)
Quarter: 2016Q4

REPORT INFORMATION
  Report Type: Spontaneous
  Country: DE (occurrence: DE)
  Receive Date: 20161024
  Receipt Date: 20161024
  Transmission Date: 20170207
  Serious: Yes (Other)
  Sender: FDA-Public Use
  Company Number: DE-SA-2016SA175591

PATIENT
  Age: 75 Year
  Sex: Male
  Weight: 76 kg

DRUGS (18)
  1. PRALUENT [Suspect]
     Active Substance: ALIROCUMAB
     Indication: HYPERCHOLESTEROLAEMIA
     Route: 058
     Dates: start: 20160604, end: 20160604
  2. MACROGOL [Concomitant]
     Active Substance: POLYETHYLENE GLYCOLS
     Dosage: SACHET
  3. ALIROCUMAB PREFILLED PEN [Concomitant]
     Active Substance: ALIROCUMAB
     Indication: HYPERCHOLESTEROLAEMIA
     Dates: start: 20160604, end: 20160604
  4. STAURODORM [Concomitant]
     Dosage: 0-0-1/2
  5. ATORVASTATIN [Concomitant]
     Active Substance: ATORVASTATIN
     Dosage: 0-0-1
  6. LODOTRA [Concomitant]
     Active Substance: PREDNISONE
     Dosage: 0-0-1
  7. NOVALGIN [Concomitant]
     Active Substance: METAMIZOLE SODIUM
  8. TARGIN [Concomitant]
     Active Substance: NALOXONE HYDROCHLORIDE\OXYCODONE HYDROCHLORIDE
     Dosage: 10 MG/5MG RELEASED TABLET 1-0-1
  9. DIGIMERCK MINOR [Concomitant]
     Dosage: 1-0-0
  10. PREDNI-H-TABLINEN [Concomitant]
     Dosage: 0.5-0-0
  11. DEKRISTOL [Concomitant]
     Active Substance: CHOLECALCIFEROL
     Dosage: EVERY 14 DAYS
  12. XARELTO [Concomitant]
     Active Substance: RIVAROXABAN
  13. FOLSAN [Concomitant]
     Active Substance: FOLIC ACID
     Dosage: 1 DF EVERY 2ND DAY
  14. ISOPTIN [Concomitant]
     Active Substance: VERAPAMIL HYDROCHLORIDE
     Dosage: 0-0-1
  15. METHOTREXATE. [Concomitant]
     Active Substance: METHOTREXATE
     Dosage: DOSE:25 MILLIGRAM(S)/MILLILITRE
  16. RASILEZ [Concomitant]
     Active Substance: ALISKIREN
     Dosage: 1-0-0
  17. AMINEURIN [Concomitant]
     Active Substance: AMITRIPTYLINE HYDROCHLORIDE
     Dosage: 0-0-1
  18. ISOPTIN [Concomitant]
     Active Substance: VERAPAMIL HYDROCHLORIDE
     Dosage: RELEASED TABLET 1-0-0

REACTIONS (7)
  - Sepsis [Recovered/Resolved]
  - Erythema [Recovered/Resolved]
  - Blood triglycerides increased [Unknown]
  - Pyrexia [Recovered/Resolved]
  - Liver function test increased [Unknown]
  - C-reactive protein increased [Recovered/Resolved]
  - Bedridden [Recovered/Resolved]

NARRATIVE: CASE EVENT DATE: 20160607
